FAERS Safety Report 18309101 (Version 3)
Quarter: 2020Q4

REPORT INFORMATION
  Report Type: Report from Study
  Country: NP (occurrence: NP)
  Receive Date: 20200924
  Receipt Date: 20201205
  Transmission Date: 20210113
  Serious: Yes (Death)
  Sender: FDA-Public Use
  Company Number: NP-JNJFOC-20200929692

PATIENT
  Age: 55 Year
  Sex: Male
  Weight: 51 kg

DRUGS (2)
  1. SPIRONOLACTONE. [Concomitant]
     Active Substance: SPIRONOLACTONE
  2. RIVAROXABAN [Suspect]
     Active Substance: RIVAROXABAN
     Indication: ATRIAL FIBRILLATION
     Dosage: 15 MG
     Route: 048
     Dates: start: 20180807

REACTIONS (1)
  - Injury [Fatal]

NARRATIVE: CASE EVENT DATE: 20200714
